FAERS Safety Report 6611999-7 (Version None)
Quarter: 2010Q1

REPORT INFORMATION
  Report Type: 
  Country: None (occurrence: None)
  Receive Date: 20100303
  Receipt Date: 20100301
  Transmission Date: 20100710
  Serious: Yes (Hospitalization)
  Sender: FDA-Public Use
  Company Number: A0583413A

PATIENT
  Age: 82 Year
  Sex: Male
  Weight: 88.6 kg

DRUGS (5)
  1. AVANDIA [Suspect]
     Dosage: 4MG TWICE PER DAY
     Route: 048
     Dates: start: 20030201, end: 20070401
  2. DIOVAN HCT [Concomitant]
  3. AMARYL [Concomitant]
  4. ATENOLOL [Concomitant]
  5. GLYBURIDE [Concomitant]

REACTIONS (7)
  - BLOOD GLUCOSE DECREASED [None]
  - CORONARY ARTERY DISEASE [None]
  - DIABETES MELLITUS [None]
  - DIABETES MELLITUS INADEQUATE CONTROL [None]
  - GOUT [None]
  - HYPOAESTHESIA [None]
  - PROCEDURAL PAIN [None]
